FAERS Safety Report 5692069-1 (Version None)
Quarter: 2008Q2

REPORT INFORMATION
  Report Type: 
  Country: None (occurrence: None)
  Receive Date: 20080402
  Receipt Date: 20080321
  Transmission Date: 20081010
  Serious: Yes (Other)
  Sender: FDA-Public Use
  Company Number: FR-PFIZER INC-2008026629

PATIENT
  Age: 79 Year
  Sex: Male

DRUGS (3)
  1. LYRICA [Suspect]
     Indication: DIABETIC NEUROPATHY
  2. PROPRANOLOL [Concomitant]
  3. SPIRONOLACTONE [Concomitant]

REACTIONS (1)
  - HEPATIC ENCEPHALOPATHY [None]
